FAERS Safety Report 11934154 (Version 1)
Quarter: 2016Q1

REPORT INFORMATION
  Report Type: Spontaneous
  Country: US (occurrence: None)
  Receive Date: 20160120
  Receipt Date: 20160120
  Transmission Date: 20160526
  Serious: Yes (Disabling, Other)
  Sender: FDA-Public Use
  Company Number: None

PATIENT
  Age: 25 Year
  Sex: Female
  Weight: 117.94 kg

DRUGS (1)
  1. MIRENA [Suspect]
     Active Substance: LEVONORGESTREL

REACTIONS (6)
  - Papilloedema [None]
  - Loss of employment [None]
  - Headache [None]
  - Visual field defect [None]
  - Blindness [None]
  - Educational problem [None]

NARRATIVE: CASE EVENT DATE: 20140108
